FAERS Safety Report 5973707-2 (Version None)
Quarter: 2008Q4

REPORT INFORMATION
  Report Type: 
  Country: None (occurrence: None)
  Receive Date: 20081201
  Receipt Date: 20081118
  Transmission Date: 20090506
  Serious: Yes (Other)
  Sender: FDA-Public Use
  Company Number: US-AVENTIS-200817916US

PATIENT
  Age: 91 Year
  Sex: Female

DRUGS (4)
  1. LANTUS [Suspect]
  2. CINNAMON EXTRACT [Concomitant]
  3. ALPHA LIPOIC ACID [Concomitant]
     Dosage: DOSE: UNK
  4. ENZYMES [Concomitant]
     Dosage: DOSE: UNK

REACTIONS (4)
  - ACCIDENT [None]
  - BLOOD GLUCOSE INCREASED [None]
  - FALL [None]
  - HIP FRACTURE [None]
